FAERS Safety Report 20309295 (Version 5)
Quarter: 2025Q3

REPORT INFORMATION
  Report Type: Spontaneous
  Country: US (occurrence: US)
  Receive Date: 20220107
  Receipt Date: 20250816
  Transmission Date: 20251021
  Serious: Yes (Other)
  Sender: ALEXION PHARMACEUTICALS
  Company Number: 2021A867829

PATIENT
  Age: 42 Year
  Sex: Female
  Weight: 78.471 kg

DRUGS (3)
  1. SYMBICORT [Suspect]
     Active Substance: BUDESONIDE\FORMOTEROL FUMARATE DIHYDRATE
     Indication: Asthma
  2. FLONASE [Concomitant]
     Active Substance: FLUTICASONE PROPIONATE
  3. ALBUTEROL [Concomitant]
     Active Substance: ALBUTEROL

REACTIONS (5)
  - Choking sensation [Unknown]
  - Sensation of foreign body [Unknown]
  - Cough [Unknown]
  - Dysphonia [Unknown]
  - Device defective [Unknown]

NARRATIVE: CASE EVENT DATE: 20211209
